FAERS Safety Report 9418140 (Version 1)
Quarter: 2013Q3

REPORT INFORMATION
  Report Type: Spontaneous
  Country: US (occurrence: US)
  Receive Date: 20130724
  Receipt Date: 20130724
  Transmission Date: 20140515
  Serious: Yes (Other)
  Sender: FDA-Public Use
  Company Number: PHHY2013US078262

PATIENT
  Sex: Female

DRUGS (5)
  1. BACLOFEN INTRATHECAL [Suspect]
     Indication: PAIN
     Dosage: UNK UKN, UNK
     Route: 037
  2. FENTANYL [Suspect]
     Dosage: UNK UKN, UNK
     Route: 037
  3. CLONIDINE [Suspect]
     Dosage: UNK UKN, UNK
     Route: 037
  4. BUPIVICAINE [Suspect]
     Dosage: 8.7 MG/DAY (SIMPLE CONTINUOUS)
     Route: 037
  5. PRIALT [Suspect]
     Dosage: UNK UKN, UNK
     Route: 037

REACTIONS (2)
  - Therapeutic response decreased [Unknown]
  - Drug withdrawal syndrome [Unknown]
